FAERS Safety Report 7568097-8 (Version None)
Quarter: 2011Q2

REPORT INFORMATION
  Report Type: 
  Country: None (occurrence: None)
  Receive Date: 20110623
  Receipt Date: 20110615
  Transmission Date: 20111010
  Serious: Yes (Hospitalization)
  Sender: FDA-Public Use
  Company Number: US-ACTELION-A-NJ2011-49882

PATIENT

DRUGS (2)
  1. TRACLEER [Suspect]
     Indication: PULMONARY ARTERIAL HYPERTENSION
     Dosage: UNK
     Route: 048
     Dates: start: 20081105
  2. REVATIO [Concomitant]

REACTIONS (4)
  - SPINAL COLUMN STENOSIS [None]
  - SURGERY [None]
  - DYSPNOEA [None]
  - OEDEMA [None]
